FAERS Safety Report 17965564 (Version 2)
Quarter: 2020Q3

REPORT INFORMATION
  Report Type: Report from Study
  Country: None (occurrence: CH)
  Receive Date: 20200701
  Receipt Date: 20200728
  Transmission Date: 20201103
  Serious: Yes (Other)
  Sender: FDA-Public Use
  Company Number: CH-ABBVIE-20K-151-3458165-00

PATIENT
  Age: 63 Year
  Sex: Male

DRUGS (16)
  1. QUETIAPIN [Concomitant]
     Active Substance: QUETIAPINE
     Dosage: IN THE EVENING
  2. GUTRON [Concomitant]
     Active Substance: MIDODRINE HYDROCHLORIDE
     Indication: PRODUCT USED FOR UNKNOWN INDICATION
     Dosage: MORNING, NOON, EVENING, NIGHT
  3. LAXOBERON [Concomitant]
     Active Substance: SODIUM PICOSULFATE
     Indication: PRODUCT USED FOR UNKNOWN INDICATION
     Dosage: IN THE EVENING
  4. OXYNORM [Concomitant]
     Active Substance: OXYCODONE HYDROCHLORIDE
     Indication: PRODUCT USED FOR UNKNOWN INDICATION
     Dosage: IN THE MORNING, IN THE EVENING
  5. DUODOPA [Suspect]
     Active Substance: CARBIDOPA\LEVODOPA
     Dosage: MD: 3 ML, CRD: 4.2 ML/H, CONTINUOUS RATE NIGHT: 3 ML/H, ED: 0 ML?24 H THERAPY
     Route: 050
     Dates: start: 20200428, end: 20200429
  6. PANTOZOL [Concomitant]
     Active Substance: PANTOPRAZOLE SODIUM
     Indication: PRODUCT USED FOR UNKNOWN INDICATION
     Dosage: IN THE MORNING
  7. DUODOPA [Suspect]
     Active Substance: CARBIDOPA\LEVODOPA
     Dosage: 24 H THERAPY
     Route: 050
     Dates: start: 202006
  8. OXYNORM [Concomitant]
     Active Substance: OXYCODONE HYDROCHLORIDE
     Dosage: IN THE EVENING
  9. DUODOPA [Suspect]
     Active Substance: CARBIDOPA\LEVODOPA
     Dosage: MD: 3 ML, CRD: 4.3 ML/H, CONTINUOUS RATE NIGHT: 3 ML/H, ED: 0 ML?24 H THERAPY
     Route: 050
     Dates: start: 20200429, end: 20200618
  10. DUODOPA [Suspect]
     Active Substance: CARBIDOPA\LEVODOPA
     Dosage: MD: 3 ML, CRD: 4.3 ML/H, CONTINUOUS RATE NIGHT: 3 ML/H, ED: 0 ML?24 H THERAPY
     Route: 050
     Dates: start: 20200619, end: 20200619
  11. DUODOPA [Suspect]
     Active Substance: CARBIDOPA\LEVODOPA
     Indication: PARKINSON^S DISEASE
     Route: 050
     Dates: start: 20190805, end: 20200428
  12. DUODOPA [Suspect]
     Active Substance: CARBIDOPA\LEVODOPA
     Dosage: MD: UNKNOWN, CRD: 4 ML/H, CRN: 3 ML/H, EXTRA DOSE: 0 ML; CASSETTE CHANGE AT 6 AM AND 10 PM
     Route: 050
     Dates: start: 20200619, end: 202006
  13. QUETIAPIN [Concomitant]
     Active Substance: QUETIAPINE
     Indication: PRODUCT USED FOR UNKNOWN INDICATION
  14. EXELON [Concomitant]
     Active Substance: RIVASTIGMINE TARTRATE
     Indication: PRODUCT USED FOR UNKNOWN INDICATION
     Dosage: IN THE MORNING AND IN THE EVENING
  15. NOVALGIN [Concomitant]
     Indication: PRODUCT USED FOR UNKNOWN INDICATION
     Dosage: MORNING, NOON, EVENING, NIGHT
  16. CLOPIN ECO [Concomitant]
     Active Substance: CLOZAPINE
     Indication: PRODUCT USED FOR UNKNOWN INDICATION

REACTIONS (24)
  - Off label use [Recovered/Resolved]
  - Parkinsonian gait [Unknown]
  - Aggression [Unknown]
  - Feeling abnormal [Unknown]
  - Device dislocation [Not Recovered/Not Resolved]
  - Off label use [Not Recovered/Not Resolved]
  - Disorientation [Unknown]
  - Delusion [Unknown]
  - Gait disturbance [Unknown]
  - Agitation [Unknown]
  - Chills [Unknown]
  - Propulsive gait [Unknown]
  - Freezing phenomenon [Unknown]
  - Device dislocation [Not Recovered/Not Resolved]
  - Tooth abscess [Unknown]
  - Bradykinesia [Unknown]
  - Dyskinesia [Unknown]
  - Psychotic disorder [Unknown]
  - Akinesia [Unknown]
  - Hyperkinesia [Unknown]
  - Wrong technique in device usage process [Unknown]
  - Personality disorder [Unknown]
  - Speech disorder [Unknown]
  - Intentional device misuse [Recovered/Resolved]

NARRATIVE: CASE EVENT DATE: 202006
